FAERS Safety Report 16876028 (Version 1)
Quarter: 2019Q4

REPORT INFORMATION
  Report Type: Spontaneous
  Country: US (occurrence: US)
  Receive Date: 20191002
  Receipt Date: 20191002
  Transmission Date: 20200122
  Serious: No
  Sender: FDA-Public Use
  Company Number: US-GW PHARMA-201908USGW2700

PATIENT

DRUGS (11)
  1. EPIDIOLEX [Suspect]
     Active Substance: CANNABIDIOL
     Dosage: 17.36 MG/KG, 480 MILLIGRAM, BID
     Route: 048
     Dates: start: 2019, end: 2019
  2. FELBAMATE. [Concomitant]
     Active Substance: FELBAMATE
     Indication: EPILEPSY
     Dosage: UNK
     Route: 065
     Dates: end: 2019
  3. MELATONIN [Concomitant]
     Active Substance: MELATONIN
     Indication: PRODUCT USED FOR UNKNOWN INDICATION
     Dosage: UNK
     Route: 065
  4. EPIDIOLEX [Suspect]
     Active Substance: CANNABIDIOL
     Indication: LENNOX-GASTAUT SYNDROME
     Dosage: 4.70 MG/KG,130 MILLIGRAM, BID
     Route: 048
     Dates: start: 201901, end: 2019
  5. VITAMIN D3 [Concomitant]
     Active Substance: CHOLECALCIFEROL
     Indication: PRODUCT USED FOR UNKNOWN INDICATION
     Dosage: 1000 INTERNATIONAL UNIT, BID
     Route: 048
  6. ELIDEL [Concomitant]
     Active Substance: PIMECROLIMUS
     Indication: PRODUCT USED FOR UNKNOWN INDICATION
     Dosage: UNK (1 APPLICATION BID)
     Route: 061
  7. EPIDIOLEX [Suspect]
     Active Substance: CANNABIDIOL
     Dosage: 19.17 MG/KG, 530 MILLIGRAM, BID
     Route: 048
     Dates: start: 201905
  8. DIASTAT [DIAZEPAM] [Concomitant]
     Indication: SEIZURE
     Dosage: 10 MILLIGRAM, PRN (FOR SEIZURE GREATER THAN 3 MINUTES OR CLUSTER SEIZURES)
     Route: 054
  9. DEPAKOTE [Concomitant]
     Active Substance: DIVALPROEX SODIUM
     Indication: EPILEPSY
     Dosage: 250 MILLIGRAM, BID
     Route: 048
  10. POLYETHYLENE GLYCOL [Concomitant]
     Active Substance: POLYETHYLENE GLYCOLS
     Indication: CONSTIPATION
     Dosage: 17 GRAM MIX IN WATER AND DRINK DAILY, PRN
     Route: 048
  11. KLONOPIN [Concomitant]
     Active Substance: CLONAZEPAM
     Indication: EPILEPSY
     Dosage: 2.5 DOSAGE FORM, QD (0.5 DF IN MORNING AND 2 DF AT BEDTIME)
     Route: 048

REACTIONS (4)
  - Diarrhoea [Unknown]
  - Somnolence [Unknown]
  - Hepatic enzyme abnormal [Unknown]
  - Drug ineffective [Unknown]

NARRATIVE: CASE EVENT DATE: 2019
